FAERS Safety Report 4656965-6 (Version None)
Quarter: 2005Q2

REPORT INFORMATION
  Report Type: 
  Country: None (occurrence: None)
  Receive Date: 20050506
  Receipt Date: 20050503
  Transmission Date: 20051028
  Serious: Yes (Disabling)
  Sender: FDA-Public Use
  Company Number: FRWYE636503MAY05

PATIENT
  Sex: Female

DRUGS (1)
  1. EFFEXOR [Suspect]
     Route: 048
     Dates: start: 20030101, end: 20030101

REACTIONS (4)
  - DRUG EXPOSURE DURING PREGNANCY [None]
  - NEONATAL DISORDER [None]
  - POLAND'S SYNDROME [None]
  - SKIN HYPOPLASIA [None]
